FAERS Safety Report 25770646 (Version 1)
Quarter: 2025Q3

REPORT INFORMATION
  Report Type: Spontaneous
  Country: US (occurrence: US)
  Receive Date: 20250908
  Receipt Date: 20250908
  Transmission Date: 20251021
  Serious: No
  Sender: GLENMARK
  Company Number: US-GLENMARK PHARMACEUTICALS-2025GMK100669

PATIENT

DRUGS (2)
  1. CLOTRIMAZOLE CREAM 1% [Suspect]
     Active Substance: CLOTRIMAZOLE
     Indication: Dermatitis diaper
     Dosage: UNK, BID
     Route: 061
     Dates: start: 20250515
  2. ZINC OXIDE [Concomitant]
     Active Substance: ZINC OXIDE
     Indication: Dermatitis diaper
     Route: 065

REACTIONS (1)
  - Product use in unapproved indication [Unknown]

NARRATIVE: CASE EVENT DATE: 20250515
